FAERS Safety Report 6378786-9 (Version None)
Quarter: 2009Q3

REPORT INFORMATION
  Report Type: 
  Country: None (occurrence: None)
  Receive Date: 20090928
  Receipt Date: 20090914
  Transmission Date: 20100115
  Serious: Yes (Hospitalization)
  Sender: FDA-Public Use
  Company Number: FR-BRISTOL-MYERS SQUIBB COMPANY-14757512

PATIENT
  Age: 75 Year
  Sex: Male

DRUGS (11)
  1. METFORMIN HCL [Suspect]
     Indication: DIABETES MELLITUS
     Dosage: 2 DF- 1 DOSAGE FORMS, 2 IN 1 D
     Route: 048
     Dates: start: 20060101
  2. CARDENSIEL [Suspect]
     Indication: CARDIAC FAILURE
     Dosage: CARDENSIEL 2.5 MG TABS
     Route: 048
     Dates: start: 20060101
  3. LEVOTHYROXINE SODIUM [Suspect]
     Indication: HYPOTHYROIDISM
     Dosage: TABLET
     Route: 048
     Dates: start: 20060101
  4. AMIODARONE HCL [Suspect]
     Indication: ATRIAL FIBRILLATION
     Dosage: TABLET, 1 DOSAGE FORM
     Route: 048
     Dates: start: 20060101
  5. OMEPRAZOLE [Suspect]
     Dosage: TABLET, 1 DOSAGE FORM
     Route: 048
     Dates: start: 20060101
  6. ROVAMYCINE [Suspect]
     Indication: LUNG DISORDER
     Dates: start: 20090601, end: 20090625
  7. LASILIX [Suspect]
     Indication: CARDIAC FAILURE
     Dosage: 500MG IN MORNING,250MG IN EVENING LASILIX SPECIAL 500MG TABS
     Route: 048
     Dates: start: 20060101
  8. PREVISCAN [Suspect]
     Indication: THROMBOSIS PROPHYLAXIS
     Dosage: 20 MG,TABS
     Route: 048
     Dates: start: 20060101
  9. TRIATEC [Suspect]
     Indication: CARDIAC FAILURE
     Dosage: TABLET 2 DOSAGE FORM
     Route: 048
     Dates: start: 20060101
  10. LANTUS [Suspect]
     Indication: INSULIN-REQUIRING TYPE 2 DIABETES MELLITUS
     Dosage: SOLUTION FOR INJECTION
     Route: 058
  11. ALDACTONE [Suspect]
     Dosage: TABLET
     Route: 048
     Dates: start: 20060101

REACTIONS (1)
  - PURPURA [None]
